FAERS Safety Report 18319638 (Version 2)
Quarter: 2020Q4

REPORT INFORMATION
  Report Type: Spontaneous
  Country: US (occurrence: US)
  Receive Date: 20200928
  Receipt Date: 20201005
  Transmission Date: 20210113
  Serious: No
  Sender: FDA-Public Use
  Company Number: US-BAYER-2020-208621

PATIENT
  Sex: Male

DRUGS (31)
  1. FLUTICASONE. [Concomitant]
     Active Substance: FLUTICASONE
  2. PATANOL [Concomitant]
     Active Substance: OLOPATADINE HYDROCHLORIDE
  3. PRILOSEC [Concomitant]
     Active Substance: OMEPRAZOLE MAGNESIUM
  4. REFRESH TEARS [Concomitant]
     Active Substance: CARBOXYMETHYLCELLULOSE SODIUM
     Dosage: UNK
  5. VITAMIN D2 [Concomitant]
     Active Substance: ERGOCALCIFEROL
  6. XANAX [Concomitant]
     Active Substance: ALPRAZOLAM
  7. LOSARTAN. [Concomitant]
     Active Substance: LOSARTAN
  8. ERYTHROMYCIN. [Concomitant]
     Active Substance: ERYTHROMYCIN
     Dosage: UNK
  9. COMETRIQ [Suspect]
     Active Substance: CABOZANTINIB S-MALATE
     Indication: THYROID CANCER
     Dosage: 60 MG, QD
     Route: 048
     Dates: start: 20191111
  10. FISH OIL [Concomitant]
     Active Substance: FISH OIL
     Dosage: UNK
  11. SYNTHROID [Concomitant]
     Active Substance: LEVOTHYROXINE SODIUM
     Dosage: UNK
  12. ZOMETA [Concomitant]
     Active Substance: ZOLEDRONIC ACID
  13. PROCTOZONE HC [Concomitant]
     Active Substance: HYDROCORTISONE
  14. AZITHROMYCIN ANHYDROUS. [Concomitant]
     Active Substance: AZITHROMYCIN ANHYDROUS
  15. BETAMETHASONE. [Concomitant]
     Active Substance: BETAMETHASONE
  16. ALEVE [Concomitant]
     Active Substance: NAPROXEN SODIUM
     Dosage: UNK
  17. PROBIOTIC [BIFIDOBACTERIUM LACTIS] [Concomitant]
     Active Substance: BIFIDOBACTERIUM ANIMALIS LACTIS
  18. SELENIUM [Concomitant]
     Active Substance: SELENIUM
     Dosage: UNK
  19. LORAZEPAM. [Concomitant]
     Active Substance: LORAZEPAM
  20. NEXAVAR [Suspect]
     Active Substance: SORAFENIB
     Indication: THYROID CANCER
     Dosage: UNK
     Dates: start: 20200605
  21. DIGESTIVE ENZYME [Concomitant]
     Active Substance: UNSPECIFIED INGREDIENT
     Dosage: UNK
  22. MAGNESIUM [Concomitant]
     Active Substance: MAGNESIUM
  23. DOXAZOSIN [Concomitant]
     Active Substance: DOXAZOSIN MESYLATE
  24. ALBUTEROL [SALBUTAMOL] [Concomitant]
     Active Substance: ALBUTEROL
  25. VITAMIN B COMPLEX [CYANOCOBALAMIN] [Concomitant]
     Dosage: UNK
  26. HAWTHORN [CRATAEGUS LAEVIGATA] [Concomitant]
  27. PSEUDOEPHEDRINE HYDROCHLORIDE. [Concomitant]
     Active Substance: PSEUDOEPHEDRINE HYDROCHLORIDE
  28. DICLOFENAC [Concomitant]
     Active Substance: DICLOFENAC
  29. FAMOTIDINE. [Concomitant]
     Active Substance: FAMOTIDINE
  30. ALREX [ALPRAZOLAM] [Suspect]
     Active Substance: ALPRAZOLAM
     Dosage: UNK
  31. PEPCID [Concomitant]
     Active Substance: FAMOTIDINE

REACTIONS (14)
  - Fatigue [None]
  - Feeling abnormal [None]
  - Decreased appetite [None]
  - Abdominal discomfort [None]
  - Disturbance in attention [None]
  - Gastrooesophageal reflux disease [None]
  - Weight decreased [None]
  - Taste disorder [None]
  - Glossodynia [None]
  - Sciatica [None]
  - Musculoskeletal pain [None]
  - Pain in extremity [None]
  - Dry mouth [None]
  - Pain [None]
